FAERS Safety Report 16141268 (Version 2)
Quarter: 2019Q2

REPORT INFORMATION
  Report Type: Spontaneous
  Country: US (occurrence: US)
  Receive Date: 20190401
  Receipt Date: 20190510
  Transmission Date: 20190711
  Serious: No
  Sender: FDA-Public Use
  Company Number: US-PFIZER INC-2019130846

PATIENT
  Age: 77 Year
  Sex: Female

DRUGS (3)
  1. ADVAIR HFA [Concomitant]
     Active Substance: FLUTICASONE PROPIONATE\SALMETEROL XINAFOATE
     Dosage: 1 DF, 2X/DAY (250MCG-50MCG) (INHALER 1 PUFF TWICE A DAY BY INHALATION ROUTE AS DIRECTED FOR 30 DAY)
     Route: 055
  2. CELEBREX [Suspect]
     Active Substance: CELECOXIB
     Dosage: 200 MG, 2X/DAY
     Dates: start: 2008
  3. CELEBREX [Suspect]
     Active Substance: CELECOXIB
     Indication: ARTHRITIS
     Dosage: 400 MG, 1X/DAY (200MG, 2 TABLETS ONCE DAILY)

REACTIONS (2)
  - Influenza [Unknown]
  - Malaise [Not Recovered/Not Resolved]
